FAERS Safety Report 19700681 (Version 3)
Quarter: 2022Q3

REPORT INFORMATION
  Report Type: Spontaneous
  Country: US (occurrence: US)
  Receive Date: 20210813
  Receipt Date: 20220929
  Transmission Date: 20221026
  Serious: No
  Sender: FDA-Public Use
  Company Number: US-PFIZER INC-2021900647

PATIENT
  Age: 82 Year
  Sex: Female

DRUGS (2)
  1. IBRANCE [Suspect]
     Active Substance: PALBOCICLIB
     Indication: Breast cancer female
     Dosage: 75 MG
     Dates: start: 20190917
  2. IBRANCE [Suspect]
     Active Substance: PALBOCICLIB
     Dosage: 75 MG, CYCLIC QD 21 ON/ 7 OFF
     Route: 048
     Dates: start: 20190925

REACTIONS (3)
  - Product dose omission in error [Recovered/Resolved]
  - Product dose omission issue [Unknown]
  - White blood cell count abnormal [Unknown]
